FAERS Safety Report 4656178-8 (Version None)
Quarter: 2005Q2

REPORT INFORMATION
  Report Type: 
  Country: None (occurrence: None)
  Receive Date: 20050509
  Receipt Date: 20050117
  Transmission Date: 20051028
  Serious: No
  Sender: FDA-Public Use
  Company Number: US-GLAXOSMITHKLINE-A0540930A

PATIENT
  Age: 84 Year
  Sex: Female

DRUGS (5)
  1. AVANDAMET [Suspect]
     Dosage: 1TAB TWICE PER DAY
     Route: 048
  2. GLIPIZIDE [Concomitant]
  3. SYNTHROID [Concomitant]
  4. Q10 [Concomitant]
  5. CENTRUM [Concomitant]

REACTIONS (4)
  - ANOREXIA [None]
  - DRUG INEFFECTIVE [None]
  - PRURITUS [None]
  - SOMNOLENCE [None]
